FAERS Safety Report 8462751-1 (Version None)
Quarter: 2012Q2

REPORT INFORMATION
  Report Type: 
  Country: None (occurrence: None)
  Receive Date: 20120625
  Receipt Date: 20120615
  Transmission Date: 20120825
  Serious: Yes (Other)
  Sender: FDA-Public Use
  Company Number: TH-SANOFI-AVENTIS-2012SA043392

PATIENT
  Age: 49 Year
  Sex: Female

DRUGS (6)
  1. CLAFORAN [Suspect]
     Indication: PROPHYLAXIS
     Route: 042
     Dates: start: 20090227, end: 20090302
  2. OMEPRAZOLE (PRISOLEC) [Concomitant]
     Route: 042
     Dates: start: 20090227, end: 20090302
  3. AIR-X [Concomitant]
     Indication: FLATULENCE
     Dosage: STARTED BETWEEN 28 FEB 2009 AND 1 MARCH 2009
     Route: 048
     Dates: start: 20090228, end: 20090301
  4. ACETAMINOPHEN [Concomitant]
     Dosage: 2 TABLETS OF 500 MG, STARTED BETWEEN 28 FEB 2009 TO 1 MARCH 2009
     Route: 048
     Dates: start: 20090228
  5. OMEPRAZOLE (PRISOLEC) [Concomitant]
     Route: 048
     Dates: start: 20090302
  6. CLAFORAN [Suspect]
     Route: 042
     Dates: start: 20090227, end: 20090302

REACTIONS (9)
  - ACUTE GENERALISED EXANTHEMATOUS PUSTULOSIS [None]
  - PRURITUS [None]
  - EOSINOPHILIA [None]
  - ERYTHEMA [None]
  - RASH PUSTULAR [None]
  - DRUG RASH WITH EOSINOPHILIA AND SYSTEMIC SYMPTOMS [None]
  - RASH ERYTHEMATOUS [None]
  - BURNING SENSATION [None]
  - SKIN LESION [None]
